FAERS Safety Report 6440154-9 (Version None)
Quarter: 2009Q4

REPORT INFORMATION
  Report Type: 
  Country: None (occurrence: None)
  Receive Date: 20091113
  Receipt Date: 20090416
  Transmission Date: 20100525
  Serious: No
  Sender: FDA-Public Use
  Company Number: A0779190A

PATIENT
  Age: 66 Year
  Sex: Female

DRUGS (4)
  1. COREG [Suspect]
     Dosage: 1.5TAB TWICE PER DAY
     Route: 048
  2. DIOVAN [Concomitant]
  3. PEPCID [Concomitant]
  4. WATER PILL [Concomitant]

REACTIONS (3)
  - DIARRHOEA [None]
  - TINNITUS [None]
  - WEIGHT INCREASED [None]
